FAERS Safety Report 7450810-1 (Version None)
Quarter: 2011Q2

REPORT INFORMATION
  Report Type: 
  Country: None (occurrence: None)
  Receive Date: 20110422
  Receipt Date: 20110412
  Transmission Date: 20111010
  Serious: Yes (Hospitalization)
  Sender: FDA-Public Use
  Company Number: 1000020244

PATIENT
  Age: 83 Year
  Sex: Female
  Weight: 49 kg

DRUGS (22)
  1. ALPHAGAN P (BRIMONIDINE TARTRATE) (EYE DROPS) (BROMIDINE TARTRATE) [Concomitant]
  2. AREDIA (PAMIDRONATE DISODIUM) (INJECTION) (PAMIDRONATE DISODIUM) [Concomitant]
  3. TYLENOL (PARACETAMOL) (PARACETAMOL) [Concomitant]
  4. CALCIUM + VITAMIN D (CALCIUM D3) (CALCIUMD3) [Concomitant]
  5. NITROLINGUAL PUMPSPRAY (GLYCERYL TRINITRATE) [Concomitant]
  6. SINGULAIR (MONTELUKASTR) (MINTELUKAST) [Concomitant]
  7. CELEXA [Suspect]
     Dosage: 5 MG (5 MG,1 IN 1 D), ORAL
     Route: 048
  8. LACTULOSE (LACTULOSE) (LACTULOSE) [Concomitant]
  9. SENOKOT (SENNA ALEXANDRINA) (SENNA ALEXANDRINA) [Concomitant]
  10. XALATAN [Concomitant]
  11. ACCUPRIL (QUINAPRIL HYDROCHLORIDE) (TABLETS) (QUINAPRIL HYDROCHLORIDE) [Concomitant]
  12. M-ESLON (MORPHINE SULFATE) (CAPSULES) (MORPHINE SULFATE) [Concomitant]
  13. TYLENOL (PARACETAMOL) (PARACETAMOL) [Concomitant]
  14. DICYCLOMINE HYDROCHLORIDE USP (DICYCLOVERINE HYDROCHLORIDE) (DICYCLOVE [Concomitant]
  15. SYMBICORT TURBUHALER (BUDESONIDE, FORMOTEROL FUMARATE) (BUDESONIDE, FO [Concomitant]
  16. THEOPHYLLINE [Concomitant]
  17. MIACALCIN [Concomitant]
  18. VENTOLIN (SALBUTAMOL) (SALBUTAMOL) [Concomitant]
  19. COLACE (DOCUSATE SODIUM) (DOCUSATE SODIUM) [Concomitant]
  20. NORVASC (AMLODIPINE BESILATE) (TABLETS0 (AMLODIPINE BESILATE) [Concomitant]
  21. QVAR [Concomitant]
  22. SYNTHROID (LEVOTHYROXINE SODIUM) (LEVOTHYROXINE SODIUM) [Concomitant]

REACTIONS (5)
  - FATIGUE [None]
  - FALL [None]
  - NAUSEA [None]
  - VOMITING [None]
  - MUSCULAR WEAKNESS [None]
